FAERS Safety Report 18600296 (Version 7)
Quarter: 2021Q1

REPORT INFORMATION
  Report Type: Report from Study
  Country: CA (occurrence: CA)
  Receive Date: 20201210
  Receipt Date: 20210330
  Transmission Date: 20210419
  Serious: Yes (Hospitalization, Other)
  Sender: FDA-Public Use
  Company Number: CA-GLAXOSMITHKLINE-CA2020AMR240646

PATIENT
  Age: 60 Year
  Sex: Female

DRUGS (3)
  1. MEPOLIZUMAB [Suspect]
     Active Substance: MEPOLIZUMAB
     Indication: ASTHMA
     Dosage: 100 MG, Z,MONTHLY
     Route: 042
     Dates: start: 20180619
  2. MEPOLIZUMAB [Suspect]
     Active Substance: MEPOLIZUMAB
     Dosage: 100 MG, Z,MONTHLY
     Route: 042
  3. MEPOLIZUMAB [Suspect]
     Active Substance: MEPOLIZUMAB
     Dosage: 100 MG, Z, MONTHLY
     Route: 042

REACTIONS (14)
  - Gastrointestinal disorder [Unknown]
  - Biliary tract operation [Unknown]
  - Chest injury [Unknown]
  - Cataract [Unknown]
  - Cough [Recovering/Resolving]
  - Back pain [Unknown]
  - Epistaxis [Unknown]
  - Embolism [Unknown]
  - Eye operation [Unknown]
  - Fall [Unknown]
  - Confusional state [Unknown]
  - Pain [Unknown]
  - Limb injury [Unknown]
  - Headache [Unknown]

NARRATIVE: CASE EVENT DATE: 20210112
